FAERS Safety Report 4379071-7 (Version None)
Quarter: 2004Q2

REPORT INFORMATION
  Report Type: 
  Country: None (occurrence: None)
  Receive Date: 20040610
  Receipt Date: 20040602
  Transmission Date: 20050107
  Serious: Yes (Death)
  Sender: FDA-Public Use
  Company Number: 2002-07-1973

PATIENT
  Age: 28 Year
  Sex: Male

DRUGS (9)
  1. ALBUTEROL                      'LIKE PROVENTIL' [Suspect]
     Indication: ASTHMA
     Dosage: INHALATION
     Route: 055
     Dates: start: 19980112
  2. AZMACORT [Concomitant]
  3. SINUGLAIR (MONTELUKAST SODIUM) TABLETS [Concomitant]
  4. BENZONATATE TABLETS [Concomitant]
  5. PREDNISONE [Concomitant]
  6. AEROBID INHALATION [Concomitant]
  7. ZITHROMAX [Concomitant]
  8. STEROIDS (NOS) [Concomitant]
  9. FLOVENT [Concomitant]

REACTIONS (8)
  - ASTHMA [None]
  - BRONCHIAL OBSTRUCTION [None]
  - BRONCHOSPASM [None]
  - CARDIOMEGALY [None]
  - LARYNGEAL OEDEMA [None]
  - LUNG HYPERINFLATION [None]
  - MOUTH INJURY [None]
  - PULMONARY CONGESTION [None]
